FAERS Safety Report 11481783 (Version 3)
Quarter: 2017Q4

REPORT INFORMATION
  Report Type: Spontaneous
  Country: US (occurrence: US)
  Receive Date: 20150909
  Receipt Date: 20171019
  Transmission Date: 20180320
  Serious: Yes (Other)
  Sender: FDA-Public Use
  Company Number: US-PFIZER INC-2015287260

PATIENT
  Age: 36 Year
  Sex: Male

DRUGS (2)
  1. SUNITINIB MALATE. [Suspect]
     Active Substance: SUNITINIB MALATE
     Indication: THYMOMA MALIGNANT
     Dosage: UNK
  2. ZOMETA [Suspect]
     Active Substance: ZOLEDRONIC ACID
     Indication: THYMOMA MALIGNANT
     Dosage: UNK

REACTIONS (5)
  - Osteonecrosis of jaw [Unknown]
  - Anaemia [Unknown]
  - Chronic kidney disease [Recovering/Resolving]
  - Product use in unapproved indication [Unknown]
  - Rhabdomyolysis [Recovering/Resolving]
